FAERS Safety Report 6453825-5 (Version None)
Quarter: 2009Q4

REPORT INFORMATION
  Report Type: 
  Country: None (occurrence: None)
  Receive Date: 20091123
  Receipt Date: 20091123
  Transmission Date: 20100525
  Serious: Yes (Life-Threatening, Disabling)
  Sender: FDA-Public Use
  Company Number: None

PATIENT
  Age: 66 Year
  Sex: Male
  Weight: 108.4097 kg

DRUGS (1)
  1. LEVAQUIN [Suspect]
     Indication: INFECTION PROPHYLAXIS
     Dosage: ONE TABLET ONCE DAILY PO
     Route: 048
     Dates: start: 20091117, end: 20091119

REACTIONS (6)
  - ANAPHYLACTIC REACTION [None]
  - AURICULAR SWELLING [None]
  - BURNING SENSATION [None]
  - SWELLING FACE [None]
  - SWOLLEN TONGUE [None]
  - TREMOR [None]
